FAERS Safety Report 7401836-5 (Version None)
Quarter: 2011Q2

REPORT INFORMATION
  Report Type: 
  Country: None (occurrence: None)
  Receive Date: 20110408
  Receipt Date: 20091029
  Transmission Date: 20111010
  Serious: Yes (Other)
  Sender: FDA-Public Use
  Company Number: US-BAYER-200937387NA

PATIENT
  Sex: Female
  Weight: 83.9 kg

DRUGS (19)
  1. TRASYLOL [Suspect]
     Indication: AORTIC VALVE REPLACEMENT
  2. ALLOPURINOL [Concomitant]
     Dosage: 300 MG, UNK
     Route: 048
  3. VANCOMYCIN [Concomitant]
     Dosage: 1 G, UNK
     Route: 042
     Dates: start: 20030911
  4. VERSED [Concomitant]
     Dosage: UNK
     Route: 042
     Dates: start: 20030911
  5. DOPAMINE [Concomitant]
     Dosage: DRIP
     Route: 042
     Dates: start: 20030911
  6. EPINEPHRINE [Concomitant]
     Dosage: DRIP
     Route: 042
     Dates: start: 20030911
  7. TRASYLOL [Suspect]
     Indication: CARDIAC OPERATION
     Dosage: 200 ML THAN 50 ML/ HOUR
     Route: 042
     Dates: start: 20030911, end: 20030911
  8. LANOXIN [Concomitant]
     Dosage: 0.125 MG, QD
     Route: 048
  9. NEO-SYNEPHRINOL [Concomitant]
     Dosage: 0.1 MG, UNK
     Route: 042
     Dates: start: 20030911
  10. LIDOCAINE [Concomitant]
     Dosage: 100 MG, UNK
     Route: 042
     Dates: start: 20030911
  11. PROTAMINE SULFATE [Concomitant]
     Dosage: 250 MG, UNK
     Route: 042
     Dates: start: 20030911
  12. UNIVASC [Concomitant]
     Dosage: 15 MG, QD
     Route: 048
  13. TRASYLOL [Suspect]
     Indication: MITRAL VALVE REPLACEMENT
  14. SPIRONOLACTONE [Concomitant]
     Dosage: 25 MG, UNK
     Route: 048
  15. HEPARIN [Concomitant]
     Dosage: 250 MG, UNK
     Route: 042
     Dates: start: 20030911
  16. PROPRANOLOL [Concomitant]
     Dosage: 40 MG, BID
     Route: 048
  17. CELEBREX [Concomitant]
     Dosage: 200 Q/ DAILY
  18. NORVASC [Concomitant]
     Dosage: 5 MG, QD
     Route: 048
  19. TRIDIL [Concomitant]
     Dosage: DRIP
     Route: 042
     Dates: start: 20030911

REACTIONS (4)
  - PAIN [None]
  - RENAL FAILURE [None]
  - INJURY [None]
  - UNEVALUABLE EVENT [None]
